FAERS Safety Report 22045353 (Version 1)
Quarter: 2023Q1

REPORT INFORMATION
  Report Type: Spontaneous
  Country: US (occurrence: None)
  Receive Date: 20230227
  Receipt Date: 20230227
  Transmission Date: 20230418
  Serious: Yes (Other)
  Sender: FDA-Public Use
  Company Number: None

PATIENT
  Age: 71 Year
  Sex: Female
  Weight: 34.7 kg

DRUGS (13)
  1. TYMLOS [Suspect]
     Active Substance: ABALOPARATIDE
     Indication: Osteoporosis
     Dosage: FREQUENCY : DAILY;?
     Route: 058
     Dates: start: 20221130, end: 20230119
  2. Cerrtizine [Concomitant]
  3. VITAMIN D3 [Concomitant]
     Active Substance: CHOLECALCIFEROL
  4. DIGOXIN [Concomitant]
     Active Substance: DIGOXIN
  5. ESTRACE [Concomitant]
     Active Substance: ESTRADIOL
  6. REPATHA [Concomitant]
     Active Substance: EVOLOCUMAB
  7. DIFLUCAN [Concomitant]
     Active Substance: FLUCONAZOLE
  8. LOSARTAN [Concomitant]
     Active Substance: LOSARTAN
  9. AMITIZA [Concomitant]
     Active Substance: LUBIPROSTONE
  10. OMEPRAZOLE [Concomitant]
     Active Substance: OMEPRAZOLE
  11. PREDNISONE [Concomitant]
     Active Substance: PREDNISONE
  12. SPIRONOLACTONE [Concomitant]
     Active Substance: SPIRONOLACTONE
  13. VALTREX [Concomitant]
     Active Substance: VALACYCLOVIR HYDROCHLORIDE

REACTIONS (1)
  - Tachycardia [None]

NARRATIVE: CASE EVENT DATE: 20230119
